FAERS Safety Report 22239767 (Version 1)
Quarter: 2023Q2

REPORT INFORMATION
  Report Type: Spontaneous
  Country: US (occurrence: US)
  Receive Date: 20230421
  Receipt Date: 20230421
  Transmission Date: 20230721
  Serious: No
  Sender: FDA-Public Use
  Company Number: US-SA-SAC20230420000623

PATIENT
  Sex: Female
  Weight: 88.9 kg

DRUGS (12)
  1. DUPIXENT [Suspect]
     Active Substance: DUPILUMAB
     Indication: Asthma
     Dosage: 600 MG, 1X
     Route: 058
  2. DUPIXENT [Suspect]
     Active Substance: DUPILUMAB
     Dosage: 300 MG, QOW
     Route: 058
  3. ASPIRIN [Concomitant]
     Active Substance: ASPIRIN
  4. AMBIEN [Concomitant]
     Active Substance: ZOLPIDEM TARTRATE
  5. LIPITOR [Concomitant]
     Active Substance: ATORVASTATIN CALCIUM
  6. LOSARTAN POTASSIUM [Concomitant]
     Active Substance: LOSARTAN POTASSIUM
  7. INDOCIN [Concomitant]
     Active Substance: INDOMETHACIN
  8. PROAIR DIGIHALER [Concomitant]
     Active Substance: ALBUTEROL SULFATE
  9. PULMICORT FLEXHALER [Concomitant]
     Active Substance: BUDESONIDE
  10. VITAMINS NOS [Concomitant]
     Active Substance: VITAMINS
  11. CINNAMON\HERBALS [Concomitant]
     Active Substance: CINNAMON\HERBALS
  12. B12 ACTIVE [Concomitant]

REACTIONS (1)
  - COVID-19 [Unknown]
